FAERS Safety Report 25776597 (Version 1)
Quarter: 2025Q3

REPORT INFORMATION
  Report Type: Spontaneous
  Country: US (occurrence: US)
  Receive Date: 20250909
  Receipt Date: 20250909
  Transmission Date: 20251021
  Serious: No
  Sender: DOMPE FARMACEUTICI
  Company Number: US-FARMAPROD-202503-0771

PATIENT
  Age: 79 Year
  Sex: Female

DRUGS (13)
  1. OXERVATE [Suspect]
     Active Substance: CENEGERMIN-BKBJ
     Indication: Neurotrophic keratopathy
     Route: 047
     Dates: start: 20250303, end: 20250428
  2. OXERVATE [Suspect]
     Active Substance: CENEGERMIN-BKBJ
  3. OXERVATE [Suspect]
     Active Substance: CENEGERMIN-BKBJ
  4. TRAZODONE HCL [Concomitant]
     Active Substance: TRAZODONE HYDROCHLORIDE
  5. AMBIEN [Concomitant]
     Active Substance: ZOLPIDEM TARTRATE
  6. BIOTECT PLUS LIQUID [Concomitant]
  7. ASPIRIN [Concomitant]
     Active Substance: ASPIRIN
  8. VITAMIN C-ZINC [Concomitant]
  9. RED YEAST [Concomitant]
     Active Substance: RED YEAST
  10. ASCORBIC ACID\CYANOCOBALAMIN\FOLIC ACID\IRON [Concomitant]
     Active Substance: ASCORBIC ACID\CYANOCOBALAMIN\FOLIC ACID\IRON
  11. METOPROLOL SUCCINATE [Concomitant]
     Active Substance: METOPROLOL SUCCINATE
  12. LOSARTAN POTASSIUM [Concomitant]
     Active Substance: LOSARTAN POTASSIUM
  13. CLOPIDOGREL [Concomitant]
     Active Substance: CLOPIDOGREL BISULFATE

REACTIONS (8)
  - Eye pain [Not Recovered/Not Resolved]
  - Foreign body sensation in eyes [Not Recovered/Not Resolved]
  - Periorbital pain [Unknown]
  - Vision blurred [Recovered/Resolved]
  - Eye irritation [Recovering/Resolving]
  - Ocular hyperaemia [Unknown]
  - Pruritus [Unknown]
  - Dry eye [Unknown]

NARRATIVE: CASE EVENT DATE: 20250305
